FAERS Safety Report 8432101-5 (Version None)
Quarter: 2012Q2

REPORT INFORMATION
  Report Type: 
  Country: None (occurrence: None)
  Receive Date: 20120613
  Receipt Date: 20120607
  Transmission Date: 20120825
  Serious: Yes (Death, Life-Threatening, Hospitalization)
  Sender: FDA-Public Use
  Company Number: FR-BAYER-201040660GPV

PATIENT
  Age: 75 Year
  Sex: Male
  Weight: 53 kg

DRUGS (13)
  1. ERLOTINIB HYDROCHLORIDE [Suspect]
     Indication: HEPATIC NEOPLASM MALIGNANT
     Dosage: 150 MG, QD
     Route: 048
     Dates: start: 20100819, end: 20100923
  2. FENOFIBRATE [Concomitant]
     Indication: DYSLIPIDAEMIA
     Dosage: DAILY DOSE 300 MG
     Route: 048
     Dates: start: 20100706, end: 20100930
  3. ZOCOR [Concomitant]
     Indication: DYSLIPIDAEMIA
     Dosage: DAILY DOSE 20 MG
     Route: 048
     Dates: start: 19900101
  4. ALFUZOSIN HCL [Concomitant]
     Indication: BENIGN PROSTATIC HYPERPLASIA
     Dosage: DAILY DOSE 10 MG
     Route: 048
     Dates: start: 19900101, end: 20100930
  5. ZOCOR [Concomitant]
     Dosage: DAILY DOSE 20 MG
     Route: 048
     Dates: start: 20101005, end: 20101019
  6. LOPERAMIDE [Concomitant]
     Indication: GASTROENTERITIS
     Dosage: 2 MG, UNK
     Route: 048
     Dates: start: 20100503, end: 20100504
  7. LOPERAMIDE [Concomitant]
     Indication: DIARRHOEA
     Dosage: 12 MG, PRN
     Route: 048
     Dates: start: 20100812, end: 20100930
  8. LOPERAMIDE [Concomitant]
     Dosage: 2 MG, UNK
     Route: 048
     Dates: start: 20100517, end: 20100518
  9. ERLOTINIB HYDROCHLORIDE [Suspect]
     Dosage: CYCLE 6
  10. SORAFENIB (RAF KINASE INHIBITOR) [Suspect]
     Indication: HEPATIC NEOPLASM MALIGNANT
     Route: 048
     Dates: start: 20100819, end: 20100923
  11. SORAFENIB (RAF KINASE INHIBITOR) [Suspect]
     Dosage: CYCLE 6
  12. VALSARTAN [Concomitant]
     Indication: HYPERTENSION
     Dosage: DAILY DOSE 40 MG
     Route: 048
     Dates: start: 20050101, end: 20100930
  13. SPASFON [Suspect]
     Indication: PAIN PROPHYLAXIS
     Dosage: UNK
     Dates: start: 20100930, end: 20101006

REACTIONS (4)
  - GENERAL PHYSICAL HEALTH DETERIORATION [None]
  - DYSURIA [None]
  - GASTRIC PERFORATION [None]
  - RENAL FAILURE [None]
